FAERS Safety Report 25348964 (Version 1)
Quarter: 2025Q2

REPORT INFORMATION
  Report Type: Spontaneous
  Country: US (occurrence: US)
  Receive Date: 20250522
  Receipt Date: 20250522
  Transmission Date: 20250717
  Serious: No
  Sender: SANOFI AVENTIS
  Company Number: US-SA-2025SA147023

PATIENT
  Age: 43 Year
  Sex: Male
  Weight: 96.82 kg

DRUGS (2)
  1. DUPIXENT [Suspect]
     Active Substance: DUPILUMAB
     Indication: Dermatitis atopic
     Route: 058
  2. DUPIXENT [Suspect]
     Active Substance: DUPILUMAB
     Dosage: 300MG QOW
     Route: 058

REACTIONS (4)
  - Adverse drug reaction [Unknown]
  - Hypertension [Unknown]
  - Dry throat [Unknown]
  - Headache [Unknown]

NARRATIVE: CASE EVENT DATE: 20250429
